FAERS Safety Report 6403930-4 (Version None)
Quarter: 2009Q4

REPORT INFORMATION
  Report Type: 
  Country: None (occurrence: None)
  Receive Date: 20091016
  Receipt Date: 20090817
  Transmission Date: 20100525
  Serious: No
  Sender: FDA-Public Use
  Company Number: US-ALEXION-A200900664

PATIENT
  Sex: Male

DRUGS (11)
  1. SOLIRIS [Suspect]
     Indication: PAROXYSMAL NOCTURNAL HAEMOGLOBINURIA
     Dosage: STUDY E05
     Route: 042
     Dates: start: 20050101
  2. SOLIRIS [Suspect]
     Dosage: 900 MG, Q12D
     Route: 042
  3. SOLIRIS [Suspect]
     Dosage: 1200 MG, Q2W
     Route: 042
     Dates: start: 20070101
  4. HUMIRA [Concomitant]
     Dosage: Q10D
  5. ASACOL [Concomitant]
     Dosage: 1200 MG, BID
     Route: 048
  6. PREDNISONE [Concomitant]
     Dosage: 5 MG, QD
     Route: 048
  7. LOPERAMIDE [Concomitant]
     Dosage: 4 MG, BID
     Route: 048
  8. NEXIUM [Concomitant]
     Dosage: 40 MG, QD
     Route: 048
  9. EFFEXOR [Concomitant]
     Dosage: 75 MG, QD
     Route: 048
  10. MULTIVITAMIN                       /00831701/ [Concomitant]
     Dosage: UNK
     Route: 048
  11. CANASA [Concomitant]
     Dosage: UNK
     Route: 054

REACTIONS (2)
  - HAEMOGLOBIN DECREASED [None]
  - HAEMOLYSIS [None]
